FAERS Safety Report 10581458 (Version 1)
Quarter: 2014Q4

REPORT INFORMATION
  Report Type: Spontaneous
  Country: US (occurrence: None)
  Receive Date: 20141112
  Receipt Date: 20141112
  Transmission Date: 20150529
  Serious: Yes (Hospitalization)
  Sender: FDA-Public Use
  Company Number: None

PATIENT
  Age: 72 Year
  Sex: Male
  Weight: 121 kg

DRUGS (18)
  1. FLOMAX [Concomitant]
     Active Substance: TAMSULOSIN HYDROCHLORIDE
  2. XARELTO [Suspect]
     Active Substance: RIVAROXABAN
     Indication: ATRIAL FIBRILLATION
     Route: 048
  3. BENICAR [Concomitant]
     Active Substance: OLMESARTAN MEDOXOMIL
  4. MELATONIN [Concomitant]
     Active Substance: MELATONIN
  5. FENOFIBRATE. [Concomitant]
     Active Substance: FENOFIBRATE
  6. VITAMIN B12 [Concomitant]
     Active Substance: CYANOCOBALAMIN
  7. PROBIOTIC [Concomitant]
     Active Substance: PROBIOTICS NOS
  8. FOLIC ACID. [Concomitant]
     Active Substance: FOLIC ACID
  9. ALDACTONE [Concomitant]
     Active Substance: SPIRONOLACTONE
  10. CHOLECALCIFEROL [Concomitant]
     Active Substance: CHOLECALCIFEROL
  11. METFORMIN [Concomitant]
     Active Substance: METFORMIN HYDROCHLORIDE
  12. NEURONTIN [Concomitant]
     Active Substance: GABAPENTIN
  13. CELEXA [Concomitant]
     Active Substance: CITALOPRAM HYDROBROMIDE
  14. IRON SULFATE [Concomitant]
     Active Substance: FERROUS SULFATE ANHYDROUS
  15. ZETIA [Concomitant]
     Active Substance: EZETIMIBE
  16. BUMEX [Concomitant]
     Active Substance: BUMETANIDE
  17. FLECAINIDE [Concomitant]
     Active Substance: FLECAINIDE
  18. NORVASC [Concomitant]
     Active Substance: AMLODIPINE BESYLATE

REACTIONS (7)
  - Feeling abnormal [None]
  - Head injury [None]
  - Haemoglobin decreased [None]
  - Frequent bowel movements [None]
  - Presyncope [None]
  - Dizziness [None]
  - Faeces discoloured [None]

NARRATIVE: CASE EVENT DATE: 20141104
